FAERS Safety Report 14655705 (Version 1)
Quarter: 2018Q1

REPORT INFORMATION
  Report Type: Spontaneous
  Country: GB (occurrence: GB)
  Receive Date: 20180319
  Receipt Date: 20180319
  Transmission Date: 20180509
  Serious: Yes (Other)
  Sender: FDA-Public Use
  Company Number: GB-TEVA-2018-GB-869009

PATIENT
  Age: 52 Year
  Sex: Female
  Weight: 147 kg

DRUGS (12)
  1. LOSARTAN. [Concomitant]
     Active Substance: LOSARTAN
     Dosage: 1 DOSAGE FORMS DAILY;
  2. E45 [Concomitant]
     Active Substance: LANOLIN\LIGHT MINERAL OIL\PARAFFIN
  3. CETRABEN EMOLLIENT CREAM [Concomitant]
     Dosage: USE AS DIRECTED
  4. BETNOVATE [Concomitant]
     Active Substance: BETAMETHASONE
     Dosage: 2 DOSAGE FORMS DAILY;
  5. SERTRALINE [Concomitant]
     Active Substance: SERTRALINE HYDROCHLORIDE
     Dosage: 1 DOSAGE FORMS DAILY;
  6. INDAPAMIDE. [Concomitant]
     Active Substance: INDAPAMIDE
     Dosage: 1 DOSAGE FORMS DAILY; MORNING
  7. SUKKARTO [Concomitant]
     Active Substance: METFORMIN HYDROCHLORIDE
     Dosage: 2 DOSAGE FORMS DAILY;
  8. FEXOFENADINE [Concomitant]
     Active Substance: FEXOFENADINE\FEXOFENADINE HYDROCHLORIDE
     Dosage: 1 DOSAGE FORMS DAILY;
  9. RAMIPRIL. [Suspect]
     Active Substance: RAMIPRIL
     Route: 065
  10. CLOTRIMAZOLE. [Concomitant]
     Active Substance: CLOTRIMAZOLE
     Dosage: USE AS DIRECTED
  11. TERBINAFINE. [Concomitant]
     Active Substance: TERBINAFINE
     Dosage: 2 DOSAGE FORMS DAILY;
  12. HYDROCORTISONE. [Concomitant]
     Active Substance: HYDROCORTISONE
     Dosage: APPLY AS DIRECTED

REACTIONS (1)
  - Periorbital oedema [Recovered/Resolved]
